FAERS Safety Report 6335720-5 (Version None)
Quarter: 2009Q3

REPORT INFORMATION
  Report Type: 
  Country: None (occurrence: None)
  Receive Date: 20090828
  Receipt Date: 20090817
  Transmission Date: 20100115
  Serious: No
  Sender: FDA-Public Use
  Company Number: 2009009681

PATIENT
  Age: 52 Year
  Sex: Male
  Weight: 72.5755 kg

DRUGS (5)
  1. FENTORA [Suspect]
     Indication: BACK PAIN
     Dosage: 400 MCG, 1 EVERY 6 HOURS AS NEEDED, BU
     Route: 002
     Dates: start: 20060101
  2. FENTORA [Suspect]
     Indication: PAIN IN EXTREMITY
     Dosage: 400 MCG, 1 EVERY 6 HOURS AS NEEDED, BU
     Route: 002
     Dates: start: 20060101
  3. KADIAN SR (MORPHINE SULFATE) [Concomitant]
  4. LODINE [Concomitant]
  5. PRILOSEC [Concomitant]

REACTIONS (13)
  - ABDOMINAL DISCOMFORT [None]
  - ANXIETY [None]
  - CLAUSTROPHOBIA [None]
  - DRUG DEPENDENCE [None]
  - DRUG INEFFECTIVE [None]
  - FEELING JITTERY [None]
  - FEELING OF BODY TEMPERATURE CHANGE [None]
  - MEDICATION ERROR [None]
  - MUSCLE TIGHTNESS [None]
  - PRODUCT MEASURED POTENCY ISSUE [None]
  - PRODUCT QUALITY ISSUE [None]
  - THROAT TIGHTNESS [None]
  - WITHDRAWAL SYNDROME [None]
